FAERS Safety Report 4319214-4 (Version None)
Quarter: 2004Q1

REPORT INFORMATION
  Report Type: 
  Country: None (occurrence: None)
  Receive Date: 20040316
  Receipt Date: 20040301
  Transmission Date: 20041129
  Serious: Yes (Other)
  Sender: FDA-Public Use
  Company Number: GBS040314531

PATIENT
  Age: 67 Year
  Sex: Female

DRUGS (4)
  1. EVISTA [Suspect]
     Indication: OSTEOPOROSIS
     Dosage: 60 MG
     Dates: end: 20040224
  2. ALENDRONATE SODIUM [Concomitant]
  3. CALCIUM [Concomitant]
  4. CIPRAMIL [Concomitant]

REACTIONS (4)
  - COLORECTAL CANCER [None]
  - DRUG WITHDRAWAL SYNDROME [None]
  - INSOMNIA [None]
  - LIBIDO INCREASED [None]
